FAERS Safety Report 5375650-9 (Version None)
Quarter: 2007Q2

REPORT INFORMATION
  Report Type: 
  Country: None (occurrence: None)
  Receive Date: 20070627
  Receipt Date: 20070619
  Transmission Date: 20071010
  Serious: Yes (Other)
  Sender: FDA-Public Use
  Company Number: OSCN-PR-0706S-0258

PATIENT
  Sex: Female

DRUGS (2)
  1. OMNISCAN [Suspect]
     Indication: AORTIC ANEURYSM
     Dosage: NR, SINGLE DOSE, I.V.
     Route: 042
     Dates: start: 20040101, end: 20040101
  2. OMNISCAN [Suspect]
     Indication: AORTIC ANEURYSM
     Dosage: NR, SINGLE DOSE, I.V.
     Route: 042
     Dates: start: 20040101, end: 20040101

REACTIONS (3)
  - BONE SCAN ABNORMAL [None]
  - NEPHROGENIC FIBROSING DERMOPATHY [None]
  - PAIN IN EXTREMITY [None]
